FAERS Safety Report 22527646 (Version 1)
Quarter: 2023Q2

REPORT INFORMATION
  Report Type: Report from Study
  Country: MX (occurrence: MX)
  Receive Date: 20230606
  Receipt Date: 20230606
  Transmission Date: 20230721
  Serious: Yes (Life-Threatening, Hospitalization, Other)
  Sender: FDA-Public Use
  Company Number: MX-002147023-NVSC2023MX128179

PATIENT
  Age: 76 Year
  Sex: Female
  Weight: 79 kg

DRUGS (7)
  1. ELTROMBOPAG OLAMINE [Suspect]
     Active Substance: ELTROMBOPAG OLAMINE
     Indication: Immune thrombocytopenia
     Dosage: 50 MG, QD (1 OF 50 MG)
     Route: 048
     Dates: start: 20230525
  2. VALSARTAN [Suspect]
     Active Substance: VALSARTAN
     Indication: Blood pressure measurement
     Dosage: 80 MG, QD (1 OF 80 MG)
     Route: 048
  3. INSULIN NOS [Concomitant]
     Active Substance: INSULIN NOS
     Indication: Diabetes mellitus
     Dosage: 15 DRP, QD (15 DROPS/ UNITS)
     Route: 030
  4. ONASERON [Concomitant]
     Indication: Nausea
     Dosage: UNK
     Route: 065
  5. PREDNISONE [Concomitant]
     Active Substance: PREDNISONE
     Indication: Platelet disorder
     Dosage: 1 DOSAGE FORM, QD
     Route: 048
  6. ACETAMINOPHEN [Concomitant]
     Active Substance: ACETAMINOPHEN
     Indication: Infection
     Dosage: 1 DOSAGE FORM, TID
     Route: 065
  7. ACETAMINOPHEN [Concomitant]
     Active Substance: ACETAMINOPHEN
     Indication: Body temperature increased

REACTIONS (6)
  - Platelet count decreased [Not Recovered/Not Resolved]
  - Immunodeficiency [Unknown]
  - Leukaemia [Unknown]
  - Urinary tract infection [Unknown]
  - Product prescribing error [Unknown]
  - Off label use [Unknown]

NARRATIVE: CASE EVENT DATE: 20230602
